FAERS Safety Report 13227980 (Version 1)
Quarter: 2017Q1

REPORT INFORMATION
  Report Type: Spontaneous
  Country: US (occurrence: US)
  Receive Date: 20170213
  Receipt Date: 20170213
  Transmission Date: 20170428
  Serious: Yes (Other)
  Sender: FDA-Public Use
  Company Number: US-VIFOR (INTERNATIONAL) INC.-VIT-2016-03654

PATIENT
  Sex: Male

DRUGS (11)
  1. CYANOCOBALAMIN. [Concomitant]
     Active Substance: CYANOCOBALAMIN
  2. MENAQUINONE/COLECALCIFEROL [Concomitant]
  3. VELTASSA [Suspect]
     Active Substance: PATIROMER
     Indication: HYPERKALAEMIA
     Route: 048
     Dates: start: 20160701
  4. ULORIC [Concomitant]
     Active Substance: FEBUXOSTAT
  5. SODIUM BICARBONATE. [Concomitant]
     Active Substance: SODIUM BICARBONATE
  6. VELTASSA [Suspect]
     Active Substance: PATIROMER
     Indication: END STAGE RENAL DISEASE
  7. LEVOTHYROXINE. [Concomitant]
     Active Substance: LEVOTHYROXINE
  8. ERGOCALCIFEROL. [Concomitant]
     Active Substance: ERGOCALCIFEROL
  9. ATORVASTATIN CALCIUM. [Concomitant]
     Active Substance: ATORVASTATIN CALCIUM
  10. TRADJENTA [Concomitant]
     Active Substance: LINAGLIPTIN
  11. PROBIOTIC [Concomitant]
     Active Substance: PROBIOTICS NOS

REACTIONS (5)
  - Renal disorder [Not Recovered/Not Resolved]
  - Product preparation error [Recovered/Resolved]
  - Constipation [Recovered/Resolved]
  - Blood potassium increased [Recovered/Resolved]
  - Drug dose omission [Unknown]

NARRATIVE: CASE EVENT DATE: 2016
